FAERS Safety Report 4723803-2 (Version None)
Quarter: 2005Q3

REPORT INFORMATION
  Report Type: 
  Country: None (occurrence: None)
  Receive Date: 20050725
  Receipt Date: 20050704
  Transmission Date: 20060218
  Serious: Yes (Life-Threatening, Hospitalization)
  Sender: FDA-Public Use
  Company Number: PHRM2005FR02019

PATIENT
  Age: 51 Year
  Sex: Female

DRUGS (3)
  1. TRILEPTAL [Suspect]
     Indication: PARTIAL SEIZURES
     Dosage: 600 MG, BID
     Route: 048
     Dates: start: 20050615, end: 20050627
  2. ODRIK [Concomitant]
     Dosage: 2 MG, QD
     Route: 048
  3. LAROXYL [Concomitant]
     Route: 048
     Dates: start: 20050615

REACTIONS (1)
  - THROMBOCYTOPENIC PURPURA [None]
